FAERS Safety Report 5301239-3 (Version None)
Quarter: 2007Q2

REPORT INFORMATION
  Report Type: 
  Country: None (occurrence: None)
  Receive Date: 20070411
  Receipt Date: 20070326
  Transmission Date: 20071010
  Serious: Yes (Other)
  Sender: FDA-Public Use
  Company Number: 2007000559

PATIENT
  Sex: Female

DRUGS (1)
  1. ERLOTINIB (TABLET) (ERLOTINIB HCL) [Suspect]
     Indication: OVARIAN CANCER
     Dosage: 150  MG QD, ORAL
     Route: 048
     Dates: start: 20060720, end: 20060803

REACTIONS (4)
  - BLINDNESS [None]
  - HYPERCHOLESTEROLAEMIA [None]
  - HYPERTRIGLYCERIDAEMIA [None]
  - OPTIC ISCHAEMIC NEUROPATHY [None]
